FAERS Safety Report 6875477-2 (Version None)
Quarter: 2010Q3

REPORT INFORMATION
  Report Type: 
  Country: None (occurrence: None)
  Receive Date: 20100727
  Receipt Date: 20100714
  Transmission Date: 20110219
  Serious: Yes (Other)
  Sender: FDA-Public Use
  Company Number: CA-JNJFOC-20100705271

PATIENT
  Sex: Female
  Weight: 96.8 kg

DRUGS (2)
  1. REMICADE [Suspect]
     Indication: COLITIS ULCERATIVE
     Route: 042
  2. REMICADE [Suspect]
     Dosage: 2ND INFUSION
     Route: 042

REACTIONS (9)
  - CHEST DISCOMFORT [None]
  - CHILLS [None]
  - DYSPNOEA [None]
  - FLUSHING [None]
  - HYPOAESTHESIA [None]
  - INFUSION RELATED REACTION [None]
  - PHARYNGEAL HYPOAESTHESIA [None]
  - RASH [None]
  - SWELLING FACE [None]
